FAERS Safety Report 18392816 (Version 1)
Quarter: 2020Q4

REPORT INFORMATION
  Report Type: Spontaneous
  Country: CZ (occurrence: CZ)
  Receive Date: 20201016
  Receipt Date: 20201016
  Transmission Date: 20210114
  Serious: Yes (Hospitalization)
  Sender: FDA-Public Use
  Company Number: CZ-ASPEN-GLO2020CZ010046

PATIENT
  Age: 48 Year
  Sex: Male

DRUGS (1)
  1. CHLORAMBUCIL [Suspect]
     Active Substance: CHLORAMBUCIL
     Indication: GLOMERULONEPHRITIS MEMBRANOUS
     Dosage: 8 MG, QD (14 DAYS CYCLE, 14 DAYS PAUSE AND ANOTHER CYCLE)
     Route: 065

REACTIONS (2)
  - Off label use [Unknown]
  - Drug ineffective for unapproved indication [Unknown]
